FAERS Safety Report 15721091 (Version 1)
Quarter: 2018Q4

REPORT INFORMATION
  Report Type: Other
  Country: US (occurrence: US)
  Receive Date: 20181214
  Receipt Date: 20181214
  Transmission Date: 20190205
  Serious: Yes (Death, Hospitalization)
  Sender: FDA-Public Use
  Company Number: US-VISTAPHARM, INC.-VER201812-000999

PATIENT
  Sex: Male

DRUGS (2)
  1. CHLORDIAZEPOXIDE. [Concomitant]
     Active Substance: CHLORDIAZEPOXIDE
     Indication: PRODUCT USED FOR UNKNOWN INDICATION
     Dosage: TAPERED
  2. METHADONE [Suspect]
     Active Substance: METHADONE HYDROCHLORIDE
     Indication: DRUG DETOXIFICATION
     Dosage: TAPERED

REACTIONS (2)
  - Overdose [Fatal]
  - Hypoglycaemia [Unknown]
